FAERS Safety Report 5425654-2 (Version None)
Quarter: 2007Q3

REPORT INFORMATION
  Report Type: 
  Country: None (occurrence: None)
  Receive Date: 20070726
  Receipt Date: 20070521
  Transmission Date: 20080115
  Serious: No
  Sender: FDA-Public Use
  Company Number: POMP-11066

PATIENT
  Age: 44 Year
  Sex: Male
  Weight: 118 kg

DRUGS (15)
  1. MYOZYME [Suspect]
     Indication: GLYCOGEN STORAGE DISEASE TYPE II
     Dosage: 20 MG, KG, Q2WKS; IV
     Route: 042
     Dates: start: 20070406
  2. EPHEDRINE [Concomitant]
  3. ALBUTEROL [Concomitant]
  4. ATROVENT [Concomitant]
  5. CALCIUM [Concomitant]
  6. TESTOSTERONE [Concomitant]
  7. ASPIRIN [Concomitant]
  8. TYLENOL (CAPLET) [Concomitant]
  9. LOPRESSOR [Concomitant]
  10. MAGNESIUM OXIDE [Concomitant]
  11. COUMADIN [Concomitant]
  12. OXYCODONE HCL [Concomitant]
  13. OXYCONTIN [Concomitant]
  14. NEURONTIN [Concomitant]
  15. MERILAX [Concomitant]

REACTIONS (2)
  - DIZZINESS [None]
  - NAUSEA [None]
